FAERS Safety Report 10235020 (Version 2)
Quarter: 2014Q2

REPORT INFORMATION
  Report Type: Spontaneous
  Country: US (occurrence: US)
  Receive Date: 20140613
  Receipt Date: 20140613
  Transmission Date: 20141212
  Serious: Yes (Other)
  Sender: FDA-Public Use
  Company Number: US-ROCHE-1399175

PATIENT
  Sex: Male
  Weight: 97.16 kg

DRUGS (3)
  1. RITUXAN [Suspect]
     Indication: B-CELL LYMPHOMA
     Route: 042
     Dates: start: 20130326, end: 20130814
  2. RITUXAN [Suspect]
     Dosage: FOR 6 DOSES
     Route: 042
     Dates: start: 20131023, end: 20140212
  3. BENDAMUSTINE [Concomitant]
     Route: 065
     Dates: start: 20130326, end: 20130814

REACTIONS (1)
  - Organising pneumonia [Unknown]
